FAERS Safety Report 7628674-2 (Version None)
Quarter: 2011Q3

REPORT INFORMATION
  Report Type: 
  Country: None (occurrence: None)
  Receive Date: 20110714
  Receipt Date: 20110706
  Transmission Date: 20111222
  Serious: Yes (Life-Threatening, Hospitalization)
  Sender: FDA-Public Use
  Company Number: IDA-00559

PATIENT
  Age: 38 Year
  Sex: Male

DRUGS (4)
  1. MIRTAZAPINE [Suspect]
     Dosage: ORAL FORMULATION: TABLET/ ORAL FORMULATION: TABLET
     Route: 048
     Dates: start: 20101001, end: 20110519
  2. XANAX [Suspect]
     Dosage: 15 TABLETS OF 0.5MG ORAL FORMULATION: TABLET/ ORAL FORMULATION: TABLET
     Route: 048
     Dates: start: 20110516, end: 20110519
  3. ESCITALOPRAM [Suspect]
     Dosage: 6 TABLETS OF 15MG ONCE ORAL FORMULATION: TABLET/ ORAL FORMULATION: TABLET
     Route: 048
     Dates: start: 20100901, end: 20110519
  4. PROPRANOLOL [Suspect]
     Dosage: 8 TABLETS OF 40MG ONCE ORAL FORMULATION: TABLET/ORAL
     Route: 048
     Dates: start: 20110501, end: 20110519

REACTIONS (3)
  - HEPATITIS ACUTE [None]
  - HEPATIC STEATOSIS [None]
  - TOXICITY TO VARIOUS AGENTS [None]
